FAERS Safety Report 10753842 (Version 1)
Quarter: 2015Q1

REPORT INFORMATION
  Report Type: Spontaneous
  Country: US (occurrence: None)
  Receive Date: 20150129
  Receipt Date: 20150129
  Transmission Date: 20150721
  Serious: Yes (Disabling)
  Sender: FDA-Public Use
  Company Number: None

PATIENT
  Age: 65 Year
  Sex: Female
  Weight: 48.08 kg

DRUGS (1)
  1. TRAMADOL HCL 50 MG NORTHSTAR [Suspect]
     Active Substance: TRAMADOL
     Indication: MYALGIA
     Route: 048
     Dates: start: 20150122, end: 20150122

REACTIONS (8)
  - Dementia [None]
  - Slow speech [None]
  - Overdose [None]
  - Sluggishness [None]
  - Speech disorder [None]
  - Impaired driving ability [None]
  - Wrong technique in drug usage process [None]
  - Amnesia [None]

NARRATIVE: CASE EVENT DATE: 20150122
